FAERS Safety Report 4350844-X (Version None)
Quarter: 2004Q2

REPORT INFORMATION
  Report Type: 
  Country: None (occurrence: None)
  Receive Date: 20040427
  Receipt Date: 20040419
  Transmission Date: 20050107
  Serious: Yes (Hospitalization)
  Sender: FDA-Public Use
  Company Number: 2004018634

PATIENT
  Age: 10 Year
  Sex: Female
  Weight: 24 kg

DRUGS (10)
  1. NORVASC [Suspect]
     Indication: HYPERTENSION
     Dosage: 5 MG (DAILY), ORAL
     Route: 048
     Dates: start: 20030101
  2. SPIRONOLACTONE [Suspect]
     Indication: RENOVASCULAR HYPERTENSION
     Dosage: 25 MG (DAILY), ORAL
     Route: 048
     Dates: start: 19960501
  3. FUROSEMIDE [Suspect]
     Indication: RENOVASCULAR HYPERTENSION
     Dates: start: 19960101
  4. NIFEDIPINE [Suspect]
     Indication: BLOOD PRESSURE INCREASED
     Dates: start: 19960101
  5. LOSARTAN POTASSIUM [Suspect]
     Indication: RENOVASCULAR HYPERTENSION
     Dates: start: 19960101
  6. CANDESARTAN CILEXETIL (CANDESARTAN CILEXETIL) [Suspect]
     Indication: BLOOD PRESSURE INCREASED
     Dates: start: 20030101
  7. CARVEDILOL [Concomitant]
  8. DIGOXIN [Concomitant]
  9. SOMATROPIN (SOMATROPIN) [Concomitant]
  10. ALLOPURINOL [Concomitant]

REACTIONS (14)
  - BLOOD ALDOSTERONE INCREASED [None]
  - BLOOD ALKALINE PHOSPHATASE INCREASED [None]
  - BLOOD LACTATE DEHYDROGENASE INCREASED [None]
  - BLOOD UREA INCREASED [None]
  - COUGH [None]
  - DYSPNOEA [None]
  - HAEMOPTYSIS [None]
  - HYPOGAMMAGLOBULINAEMIA [None]
  - IMMUNODEFICIENCY COMMON VARIABLE [None]
  - INFLAMMATION [None]
  - LUNG INFILTRATION [None]
  - PROCEDURAL HYPERTENSION [None]
  - PULMONARY HAEMORRHAGE [None]
  - PYREXIA [None]
